FAERS Safety Report 6490002-6 (Version None)
Quarter: 2009Q4

REPORT INFORMATION
  Report Type: 
  Country: None (occurrence: None)
  Receive Date: 20091210
  Receipt Date: 20091210
  Transmission Date: 20100525
  Serious: Yes (Other)
  Sender: FDA-Public Use
  Company Number: None

PATIENT
  Age: 76 Year
  Sex: Female
  Weight: 54.4316 kg

DRUGS (3)
  1. ZOLPIDEM [Suspect]
     Indication: INSOMNIA
     Dosage: 1-2 TABLETS BEDTIME ORAL
     Route: 048
     Dates: start: 20090901, end: 20091001
  2. ZOLPIDEM [Suspect]
     Indication: IRRITABLE BOWEL SYNDROME
     Dosage: 1-2 TABLETS BEDTIME ORAL
     Route: 048
     Dates: start: 20090901, end: 20091001
  3. ALPRAZOLAM [Suspect]
     Indication: ANXIETY
     Dosage: 1 TABLET 2 X DAILY ORAL
     Route: 048
     Dates: start: 20090401

REACTIONS (8)
  - ANXIETY [None]
  - BLOOD PRESSURE INCREASED [None]
  - HEART RATE INCREASED [None]
  - INSOMNIA [None]
  - PRODUCT SUBSTITUTION ISSUE [None]
  - PRODUCT TASTE ABNORMAL [None]
  - PRURITUS [None]
  - SKIN BURNING SENSATION [None]
